FAERS Safety Report 9908295 (Version 1)
Quarter: 2014Q1

REPORT INFORMATION
  Report Type: Spontaneous
  Country: US (occurrence: US)
  Receive Date: 20140219
  Receipt Date: 20140219
  Transmission Date: 20141002
  Serious: No
  Sender: FDA-Public Use
  Company Number: US-009507513-1402USA005446

PATIENT
  Sex: 0

DRUGS (2)
  1. JANUVIA [Suspect]
     Route: 048
  2. GLUCOVANCE [Suspect]

REACTIONS (1)
  - Blood glucose abnormal [Unknown]
